FAERS Safety Report 21991155 (Version 1)
Quarter: 2023Q1

REPORT INFORMATION
  Report Type: Spontaneous
  Country: KR (occurrence: KR)
  Receive Date: 20230214
  Receipt Date: 20230214
  Transmission Date: 20230418
  Serious: Yes (Other)
  Sender: FDA-Public Use
  Company Number: KR-GE HEALTHCARE-2023CSU000761

PATIENT
  Age: 45 Year
  Sex: Male

DRUGS (7)
  1. VISIPAQUE [Suspect]
     Active Substance: IODIXANOL
     Indication: Angiocardiogram
     Dosage: 30 ML, SINGLE
     Route: 042
  2. VISIPAQUE [Suspect]
     Active Substance: IODIXANOL
     Indication: Catheterisation cardiac
  3. VISIPAQUE [Suspect]
     Active Substance: IODIXANOL
     Indication: Dyspnoea
  4. VISIPAQUE [Suspect]
     Active Substance: IODIXANOL
     Indication: Chest pain
  5. VISIPAQUE [Suspect]
     Active Substance: IODIXANOL
     Indication: Skin test
     Dosage: UNK UNK, SINGLE
     Route: 023
  6. DIAZEPAM [Concomitant]
     Active Substance: DIAZEPAM
     Indication: Premedication
     Dosage: 2 MG
  7. Bonaring [Concomitant]
     Indication: Premedication
     Dosage: 50 MG

REACTIONS (2)
  - Anaphylactoid reaction [Recovered/Resolved]
  - Off label use [Recovered/Resolved]
